FAERS Safety Report 9093990 (Version 1)
Quarter: 2013Q1

REPORT INFORMATION
  Report Type: Report from Study
  Country: US (occurrence: US)
  Receive Date: 20130131
  Receipt Date: 20130131
  Transmission Date: 20140127
  Serious: No
  Sender: FDA-Public Use
  Company Number: US-ABBOTT-12P-163-1015392-00

PATIENT
  Age: 61 Year
  Sex: Female

DRUGS (6)
  1. HUMIRA [Suspect]
     Indication: CROHN^S DISEASE
     Dates: start: 20121030
  2. HUMIRA [Suspect]
     Dates: start: 20121113
  3. REMERON [Concomitant]
     Indication: INSOMNIA
     Dosage: 15 MG NIGHTLY
  4. PENTASA [Concomitant]
     Indication: CROHN^S DISEASE
  5. FOSAMAX [Concomitant]
     Indication: OSTEOPENIA
     Dosage: WEEKLY
  6. LETROZOLE [Concomitant]
     Indication: BREAST CANCER
     Dosage: 2.5 MG DAILY

REACTIONS (3)
  - Oropharyngeal pain [Not Recovered/Not Resolved]
  - Cough [Not Recovered/Not Resolved]
  - Bronchitis [Not Recovered/Not Resolved]
